FAERS Safety Report 23462662 (Version 2)
Quarter: 2024Q1

REPORT INFORMATION
  Report Type: Spontaneous
  Country: CH (occurrence: CH)
  Receive Date: 20240131
  Receipt Date: 20240201
  Transmission Date: 20240410
  Serious: Yes (Hospitalization)
  Sender: FDA-Public Use
  Company Number: None

PATIENT
  Age: 67 Year
  Sex: Female
  Weight: 67.8 kg

DRUGS (19)
  1. ALIMTA [Suspect]
     Active Substance: PEMETREXED DISODIUM
     Indication: Lung adenocarcinoma
     Dosage: 920 MG, UNK
     Route: 042
     Dates: start: 20231229, end: 20231229
  2. YERVOY [Suspect]
     Active Substance: IPILIMUMAB
     Indication: Lung adenocarcinoma
     Dosage: 74 MG, UNK
     Route: 042
     Dates: start: 20231222, end: 20231222
  3. OPDIVO [Suspect]
     Active Substance: NIVOLUMAB
     Indication: Lung adenocarcinoma
     Dosage: 360 MG, UNK
     Route: 042
     Dates: start: 20231222, end: 20231222
  4. PARAPLATIN [Suspect]
     Active Substance: CARBOPLATIN
     Indication: Lung adenocarcinoma
     Dosage: 630 MG, UNK
     Route: 042
     Dates: start: 20231229, end: 20231229
  5. LEFLUNOMIDE [Concomitant]
     Active Substance: LEFLUNOMIDE
     Indication: Rheumatoid arthritis
     Dosage: UNK, UNKNOWN
     Route: 065
     Dates: start: 20171023, end: 20231229
  6. AMLODIPINE BESYLATE\HYDROCHLOROTHIAZIDE\OLMESARTAN MEDOXOMIL [Concomitant]
     Active Substance: AMLODIPINE BESYLATE\HYDROCHLOROTHIAZIDE\OLMESARTAN MEDOXOMIL
     Indication: Product used for unknown indication
     Dosage: UNK, DAILY
     Route: 048
     Dates: end: 20240105
  7. METAMUCIL THERAPY FOR REGULARITY [Concomitant]
     Active Substance: PSYLLIUM HUSK
     Indication: Product used for unknown indication
     Dosage: 7 G, UNK
     Route: 048
     Dates: end: 20240105
  8. VITARUBIN [CYANOCOBALAMIN] [Concomitant]
     Indication: Product used for unknown indication
     Dosage: 1000 UG, UNK
     Route: 042
  9. ZYPREXA [Concomitant]
     Active Substance: OLANZAPINE
     Indication: Nausea
     Dosage: 5 MG, UNK
     Route: 048
  10. POLYETHYLENE GLYCOL 3350\POTASSIUM CHLORIDE\SODIUM BICARBONATE\SODIUM [Concomitant]
     Active Substance: POLYETHYLENE GLYCOL 3350\POTASSIUM CHLORIDE\SODIUM BICARBONATE\SODIUM CHLORIDE
     Indication: Constipation
     Dosage: UNK, UNKNOWN
     Route: 048
  11. BEXIN [Concomitant]
     Active Substance: DEXTROMETHORPHAN HYDROBROMIDE
     Indication: Cough
     Dosage: 25 MG, UNK
     Route: 048
  12. REDORMIN [HUMULUS LUPULUS HOPS;VALERIANA OFFI [Concomitant]
     Indication: Product used for unknown indication
     Dosage: 500 MG, UNK
     Route: 048
  13. FOLVITE [Concomitant]
     Active Substance: FOLIC ACID
     Indication: Product used for unknown indication
     Dosage: 1 MG, UNK
     Route: 048
  14. ATORVASTATIN [Concomitant]
     Active Substance: ATORVASTATIN
     Indication: Product used for unknown indication
     Dosage: 20 MG, UNK
     Route: 048
  15. BISOPROLOL MEPHA [Concomitant]
     Indication: Product used for unknown indication
     Dosage: 2.5 MG, UNK
     Route: 048
  16. ELTROXIN LF [Concomitant]
     Indication: Product used for unknown indication
     Dosage: 100 UG, UNK
     Route: 048
  17. DEXAMETHASONE [Concomitant]
     Active Substance: DEXAMETHASONE
     Indication: Product used for unknown indication
     Dosage: 4 MG, UNK
     Route: 048
  18. VISCUM ALBUM FRUITING TOP [Concomitant]
     Active Substance: VISCUM ALBUM FRUITING TOP
     Indication: Product used for unknown indication
     Dosage: 1 MG, 3/W (MONDAY/WEDNESDAY/FRIDAY)
     Route: 058
     Dates: end: 20240105
  19. LOPERAMID-MEPHA [Concomitant]
     Indication: Diarrhoea
     Dosage: 2 MG, UNK
     Route: 048

REACTIONS (4)
  - Petechiae [Unknown]
  - Agranulocytosis [Unknown]
  - Colitis [Recovering/Resolving]
  - Vomiting [Unknown]

NARRATIVE: CASE EVENT DATE: 20231231
